FAERS Safety Report 23648094 (Version 1)
Quarter: 2024Q1

REPORT INFORMATION
  Report Type: Spontaneous
  Country: US (occurrence: US)
  Receive Date: 20240319
  Receipt Date: 20240319
  Transmission Date: 20240409
  Serious: No
  Sender: FDA-Public Use
  Company Number: US-ARBOR PHARMACEUTICALS, LLC-US-2023ARB004374

PATIENT
  Sex: Male

DRUGS (1)
  1. ERYTHROMYCIN [Suspect]
     Active Substance: ERYTHROMYCIN
     Indication: Gastrointestinal disorder
     Dosage: UNK, TID

REACTIONS (3)
  - Wrong technique in product usage process [Unknown]
  - Product availability issue [Unknown]
  - Product use in unapproved indication [Unknown]
